FAERS Safety Report 5053222-3 (Version None)
Quarter: 2006Q3

REPORT INFORMATION
  Report Type: 
  Country: None (occurrence: None)
  Receive Date: 20060717
  Receipt Date: 20060707
  Transmission Date: 20061208
  Serious: Yes (Other)
  Sender: FDA-Public Use
  Company Number: BR-ABBOTT-06P-020-0337679-00

PATIENT
  Sex: Female

DRUGS (1)
  1. VALPAKINE [Suspect]
     Indication: CONVULSION
     Route: 048
     Dates: start: 20060401, end: 20060502

REACTIONS (2)
  - CONVULSION [None]
  - DRUG INEFFECTIVE [None]
